FAERS Safety Report 13485106 (Version 1)
Quarter: 2017Q2

REPORT INFORMATION
  Report Type: Report from Study
  Country: None (occurrence: FR)
  Receive Date: 20170426
  Receipt Date: 20170426
  Transmission Date: 20170830
  Serious: Yes (Hospitalization)
  Sender: FDA-Public Use
  Company Number: FR-ABBVIE-17K-056-1948941-00

PATIENT
  Age: 38 Year
  Sex: Male

DRUGS (1)
  1. HUMIRA [Suspect]
     Active Substance: ADALIMUMAB
     Indication: CROHN^S DISEASE
     Route: 058

REACTIONS (8)
  - Visual impairment [Unknown]
  - Psoriasis [Unknown]
  - Urticaria [Unknown]
  - Injection site pain [Unknown]
  - Device issue [Unknown]
  - Rheumatic disorder [Unknown]
  - Incorrect dose administered [Unknown]
  - Injection site haemorrhage [Unknown]
